FAERS Safety Report 6035765-9 (Version None)
Quarter: 2009Q1

REPORT INFORMATION
  Report Type: 
  Country: None (occurrence: None)
  Receive Date: 20090109
  Receipt Date: 20081218
  Transmission Date: 20090719
  Serious: Yes (Hospitalization)
  Sender: FDA-Public Use
  Company Number: 000018

PATIENT
  Age: 70 Year
  Sex: Female

DRUGS (1)
  1. ROTIGOTINE (ROTIGOTINE) (LOT#S: 051307010002) [Suspect]
     Indication: PARKINSON'S DISEASE
     Dosage: TRANSDERMAL PATCH 8 MG QD TRANSDERMAL
     Route: 062
     Dates: start: 20030812

REACTIONS (3)
  - ARTHRALGIA [None]
  - FALL [None]
  - FEMORAL NECK FRACTURE [None]
